FAERS Safety Report 6710402-6 (Version None)
Quarter: 2010Q2

REPORT INFORMATION
  Report Type: 
  Country: None (occurrence: None)
  Receive Date: 20100430
  Receipt Date: 20100417
  Transmission Date: 20101027
  Serious: Yes (Other)
  Sender: FDA-Public Use
  Company Number: 2010BM000100

PATIENT
  Age: 4 Year
  Sex: Female
  Weight: 17 kg

DRUGS (4)
  1. NAGLAZYME [Suspect]
     Indication: MUCOPOLYSACCHARIDOSIS VI
     Dosage: 15 MG; QW; IVDRP
     Route: 041
     Dates: start: 20100120
  2. DEXCHLORPHENIRAMINE MALEATE [Concomitant]
  3. MALEATE [Concomitant]
  4. IBUPROFEN [Concomitant]

REACTIONS (5)
  - COUGH [None]
  - DYSPNOEA [None]
  - LARYNGEAL OEDEMA [None]
  - MALAISE [None]
  - UNEVALUABLE EVENT [None]
